FAERS Safety Report 6484799-9 (Version None)
Quarter: 2009Q4

REPORT INFORMATION
  Report Type: 
  Country: None (occurrence: None)
  Receive Date: 20091209
  Receipt Date: 20090323
  Transmission Date: 20100525
  Serious: No
  Sender: FDA-Public Use
  Company Number: A0774830A

PATIENT
  Age: 78 Year
  Sex: Female

DRUGS (14)
  1. AVANDAMET [Suspect]
     Dosage: 1TAB PER DAY
     Route: 048
     Dates: start: 20081223
  2. OXYBUTYN [Concomitant]
  3. PROTONIX [Concomitant]
  4. LEVOTHYROXINE SODIUM [Concomitant]
  5. GABAPENTIN [Concomitant]
  6. LIPITOR [Concomitant]
  7. METOPROLOL [Concomitant]
  8. PERPHENAZINE AND AMITRIPTYLINE HCL [Concomitant]
  9. LIPITOR [Concomitant]
  10. OXYGEN [Concomitant]
  11. MULTI-VITAMIN [Concomitant]
  12. ALBUTEROL [Concomitant]
  13. CALTRATE [Concomitant]
  14. MUSCLE RELAXER [Concomitant]

REACTIONS (2)
  - BLOOD GLUCOSE INCREASED [None]
  - DIARRHOEA [None]
